FAERS Safety Report 6227790-X (Version None)
Quarter: 2009Q2

REPORT INFORMATION
  Report Type: 
  Country: None (occurrence: None)
  Receive Date: 20090612
  Receipt Date: 20090604
  Transmission Date: 20091009
  Serious: Yes (Hospitalization)
  Sender: FDA-Public Use
  Company Number: A0646461A

PATIENT
  Age: 42 Year
  Sex: Female
  Weight: 69.1 kg

DRUGS (4)
  1. LAPATINIB [Suspect]
     Dosage: 1250MG PER DAY
     Route: 048
     Dates: start: 20070323
  2. CAPECITABINE [Suspect]
     Dosage: 1800MG TWICE PER DAY
     Route: 048
     Dates: start: 20070323
  3. DARVON [Concomitant]
     Indication: PAIN
     Dosage: 65MG AS REQUIRED
     Route: 048
     Dates: start: 20070323
  4. COMPAZINE [Concomitant]
     Indication: NAUSEA
     Dosage: 10MG AS REQUIRED
     Route: 048
     Dates: start: 20070403, end: 20070404

REACTIONS (5)
  - ABDOMINAL PAIN UPPER [None]
  - DIARRHOEA [None]
  - FATIGUE [None]
  - PYREXIA [None]
  - URINARY TRACT INFECTION [None]
